FAERS Safety Report 19447871 (Version 1)
Quarter: 2021Q2

REPORT INFORMATION
  Report Type: Spontaneous
  Country: US (occurrence: US)
  Receive Date: 20210622
  Receipt Date: 20210622
  Transmission Date: 20210717
  Serious: No
  Sender: FDA-Public Use
  Company Number: US-TEVA-2021-US-1925676

PATIENT
  Age: 51 Year
  Sex: Female

DRUGS (2)
  1. TAMOXIFEN CITRATE TEVA [Suspect]
     Active Substance: TAMOXIFEN CITRATE
     Route: 065
     Dates: start: 202101
  2. TAMOXIFEN CITRATE TEVA [Suspect]
     Active Substance: TAMOXIFEN CITRATE
     Route: 065
     Dates: start: 20210503

REACTIONS (3)
  - Dysgeusia [Unknown]
  - Cluster headache [Unknown]
  - Migraine [Unknown]

NARRATIVE: CASE EVENT DATE: 2021
